FAERS Safety Report 25707049 (Version 1)
Quarter: 2025Q3

REPORT INFORMATION
  Report Type: Spontaneous
  Country: US (occurrence: None)
  Receive Date: 20250819
  Receipt Date: 20250819
  Transmission Date: 20251021
  Serious: Yes (Life-Threatening, Hospitalization)
  Sender: FDA-CTU
  Company Number: None

PATIENT
  Age: 18 Year
  Sex: Female
  Weight: 57.61 kg

DRUGS (5)
  1. DOXYCYCLINE [Suspect]
     Active Substance: DOXYCYCLINE
  2. PREDNISONE [Suspect]
     Active Substance: PREDNISONE
  3. TESTOSTERONE [Suspect]
     Active Substance: TESTOSTERONE
  4. ASPIRIN [Suspect]
     Active Substance: ASPIRIN
  5. APIXABAN [Suspect]
     Active Substance: APIXABAN

REACTIONS (8)
  - Dyspnoea [None]
  - Fibrin D dimer increased [None]
  - Tachycardia [None]
  - Pulmonary embolism [None]
  - Duodenal ulcer haemorrhage [None]
  - Hypovolaemic shock [None]
  - Haemoglobin decreased [None]
  - Atrial fibrillation [None]

NARRATIVE: CASE EVENT DATE: 20241205
